FAERS Safety Report 15130340 (Version 5)
Quarter: 2018Q3

REPORT INFORMATION
  Report Type: Spontaneous
  Country: IE (occurrence: IE)
  Receive Date: 20180711
  Receipt Date: 20180917
  Transmission Date: 20181010
  Serious: Yes (Life-Threatening, Hospitalization, Other)
  Sender: FDA-Public Use
  Company Number: IE-PFIZER INC-2018274617

PATIENT
  Age: 61 Year
  Sex: Male

DRUGS (8)
  1. NEUPOGEN [Concomitant]
     Active Substance: FILGRASTIM
     Dosage: UNK
  2. RITUXIMAB. [Suspect]
     Active Substance: RITUXIMAB
     Indication: MANTLE CELL LYMPHOMA
     Dosage: UNK UNK, CYCLIC (2 ROUNDS)
  3. FAMCICLOVIR. [Concomitant]
     Active Substance: FAMCICLOVIR
     Dosage: UNK
  4. DOXYCYCLINE. [Concomitant]
     Active Substance: DOXYCYCLINE
     Dosage: UNK
  5. PREDNISOLONE. [Suspect]
     Active Substance: PREDNISOLONE
     Indication: MANTLE CELL LYMPHOMA
     Dosage: UNK UNK, CYCLIC (2 ROUNDS)
  6. CYCLOPHOSPHAMIDE. [Suspect]
     Active Substance: CYCLOPHOSPHAMIDE
     Indication: MANTLE CELL LYMPHOMA
     Dosage: UNK UNK, CYCLIC (2 ROUNDS)
  7. VINCRISTINE SULFATE. [Suspect]
     Active Substance: VINCRISTINE SULFATE
     Indication: MANTLE CELL LYMPHOMA
     Dosage: UNK UNK, CYCLIC (2 ROUNDS)
  8. DOXORUBICIN [Suspect]
     Active Substance: DOXORUBICIN
     Indication: MANTLE CELL LYMPHOMA
     Dosage: UNK UNK, CYCLIC (2 ROUNDS)

REACTIONS (1)
  - Pneumocystis jirovecii pneumonia [Unknown]
